FAERS Safety Report 14039494 (Version 4)
Quarter: 2018Q3

REPORT INFORMATION
  Report Type: Spontaneous
  Country: US (occurrence: US)
  Receive Date: 20171004
  Receipt Date: 20180727
  Transmission Date: 20181010
  Serious: No
  Sender: FDA-Public Use
  Company Number: US-GLAXOSMITHKLINE-US2017152396

PATIENT
  Sex: Female

DRUGS (2)
  1. NICORETTE WHITE ICE MINT [Suspect]
     Active Substance: NICOTINE
     Indication: SMOKING CESSATION THERAPY
     Dosage: 4 MG, UNK
  2. NICORETTE WHITE ICE MINT [Suspect]
     Active Substance: NICOTINE
     Dosage: 4 MG, UNK

REACTIONS (2)
  - Oral mucosal discolouration [Unknown]
  - Product quality issue [Unknown]
